FAERS Safety Report 7419253-0 (Version None)
Quarter: 2011Q2

REPORT INFORMATION
  Report Type: 
  Country: None (occurrence: None)
  Receive Date: 20110415
  Receipt Date: 20110411
  Transmission Date: 20111010
  Serious: Yes (Death)
  Sender: FDA-Public Use
  Company Number: MX-ASTRAZENECA-2011SE08393

PATIENT
  Sex: Female

DRUGS (1)
  1. FASLODEX [Suspect]
     Indication: BREAST CANCER
     Dosage: ONE APPLICATION PER MONTH, 6 MONTHLY DOSAGES
     Route: 030

REACTIONS (3)
  - HEPATIC FAILURE [None]
  - ASCITES [None]
  - TRANSAMINASES INCREASED [None]
